FAERS Safety Report 26055630 (Version 2)
Quarter: 2025Q4

REPORT INFORMATION
  Report Type: Spontaneous
  Country: US (occurrence: US)
  Receive Date: 20251117
  Receipt Date: 20251215
  Transmission Date: 20260118
  Serious: Yes (Death)
  Sender: JOHNSON AND JOHNSON
  Company Number: US-JNJFOC-20251159255

PATIENT
  Age: 19 Year
  Sex: Male

DRUGS (1)
  1. SPRAVATO [Suspect]
     Active Substance: ESKETAMINE
     Indication: Major depression
     Route: 045

REACTIONS (1)
  - Completed suicide [Fatal]

NARRATIVE: CASE EVENT DATE: 20251109
